FAERS Safety Report 8488962-7 (Version None)
Quarter: 2012Q3

REPORT INFORMATION
  Report Type: 
  Country: None (occurrence: None)
  Receive Date: 20120705
  Receipt Date: 20120702
  Transmission Date: 20120928
  Serious: No
  Sender: FDA-Public Use
  Company Number: US-PFIZER INC-2012158419

PATIENT
  Sex: Male
  Weight: 83.447 kg

DRUGS (3)
  1. VIAGRA [Suspect]
     Indication: ERECTILE DYSFUNCTION
     Dosage: 100 MG, AS NEEDED
     Route: 048
     Dates: start: 20120601
  2. SILODOSIN [Interacting]
     Indication: POLLAKIURIA
     Dosage: UNK, 1X/DAY
     Route: 048
     Dates: start: 20120501, end: 20120601
  3. ATORVASTATIN [Concomitant]
     Dosage: UNK

REACTIONS (3)
  - DRUG INEFFECTIVE [None]
  - DRUG INTERACTION [None]
  - POLLAKIURIA [None]
